FAERS Safety Report 7757535-3 (Version None)
Quarter: 2011Q3

REPORT INFORMATION
  Report Type: 
  Country: None (occurrence: None)
  Receive Date: 20110916
  Receipt Date: 20110907
  Transmission Date: 20111222
  Serious: Yes (Hospitalization, Other)
  Sender: FDA-Public Use
  Company Number: US-BAYER-2011-083313

PATIENT
  Sex: Female
  Weight: 82.086 kg

DRUGS (3)
  1. MAGNEVIST [Suspect]
     Indication: FIBROCYSTIC BREAST DISEASE
     Dosage: 2ML/SEC
     Route: 042
     Dates: start: 20110709, end: 20110709
  2. MAGNEVIST [Suspect]
     Indication: NUCLEAR MAGNETIC RESONANCE IMAGING
  3. EMOLLIENTS AND PROTECTIVES [Concomitant]
     Indication: ROSACEA

REACTIONS (6)
  - SNEEZING [None]
  - URTICARIA [None]
  - PRURITUS [None]
  - RHINORRHOEA [None]
  - ERYTHEMA [None]
  - INCREASED UPPER AIRWAY SECRETION [None]
